FAERS Safety Report 18968645 (Version 3)
Quarter: 2021Q2

REPORT INFORMATION
  Report Type: Spontaneous
  Country: US (occurrence: US)
  Receive Date: 20210304
  Receipt Date: 20210408
  Transmission Date: 20210717
  Serious: Yes (Other)
  Sender: FDA-Public Use
  Company Number: US-BEH-2021129046

PATIENT
  Age: 51 Year
  Sex: Female

DRUGS (11)
  1. HAEGARDA [Suspect]
     Active Substance: HUMAN C1-ESTERASE INHIBITOR
     Indication: HEREDITARY ANGIOEDEMA
     Dosage: 5000 INTERNATIONAL UNIT, BIW (EVERY 3?4 DAYS)
     Route: 058
     Dates: start: 20210220
  2. HAEGARDA [Suspect]
     Active Substance: HUMAN C1-ESTERASE INHIBITOR
     Indication: PROPHYLAXIS
     Dosage: UNK
     Route: 058
     Dates: end: 2019
  3. ADDERALL [Concomitant]
     Active Substance: AMPHETAMINE ASPARTATE\AMPHETAMINE SULFATE\DEXTROAMPHETAMINE SACCHARATE\DEXTROAMPHETAMINE SULFATE
     Route: 065
  4. ELAVIL [ALLOPURINOL] [Concomitant]
     Active Substance: ALLOPURINOL
     Route: 065
  5. FIRAZYR [Concomitant]
     Active Substance: ICATIBANT ACETATE
  6. BERINERT [Suspect]
     Active Substance: HUMAN C1-ESTERASE INHIBITOR
     Indication: HEREDITARY ANGIOEDEMA
     Dosage: UNK, BIW
     Route: 065
  7. BERINERT [Suspect]
     Active Substance: HUMAN C1-ESTERASE INHIBITOR
     Indication: HEREDITARY ANGIOEDEMA
     Dosage: UNK, BIW
     Route: 065
  8. CELEXA [CELECOXIB] [Concomitant]
     Active Substance: CELECOXIB
     Route: 065
  9. LAMICTAL [Concomitant]
     Active Substance: LAMOTRIGINE
     Route: 065
  10. OXYBUTYNIN CHLORIDE. [Concomitant]
     Active Substance: OXYBUTYNIN CHLORIDE
     Route: 065
  11. XANAX [Concomitant]
     Active Substance: ALPRAZOLAM
     Route: 065

REACTIONS (23)
  - Dyspnoea [Recovered/Resolved]
  - Oxygen saturation decreased [Recovered/Resolved]
  - Infusion site pain [Recovering/Resolving]
  - Retching [Recovering/Resolving]
  - Cough [Recovering/Resolving]
  - Hereditary angioedema [Recovering/Resolving]
  - Blood pressure decreased [Recovered/Resolved]
  - Pain [Recovering/Resolving]
  - Nervous system disorder [Recovering/Resolving]
  - Loss of consciousness [Recovering/Resolving]
  - Off label use [Unknown]
  - Blood pressure increased [Recovered/Resolved]
  - Choking [Recovering/Resolving]
  - Stridor [Recovering/Resolving]
  - Skin discolouration [Recovering/Resolving]
  - Ocular hyperaemia [Recovering/Resolving]
  - No adverse event [Unknown]
  - Anaphylactic reaction [Recovering/Resolving]
  - Vision blurred [Recovering/Resolving]
  - Aphasia [Recovering/Resolving]
  - Pallor [Recovering/Resolving]
  - Confusional state [Recovering/Resolving]
  - Tinnitus [Recovering/Resolving]

NARRATIVE: CASE EVENT DATE: 20210220
